FAERS Safety Report 11762566 (Version 1)
Quarter: 2015Q4

REPORT INFORMATION
  Report Type: Spontaneous
  Country: GB (occurrence: GB)
  Receive Date: 20151120
  Receipt Date: 20151120
  Transmission Date: 20160304
  Serious: Yes (Death, Other)
  Sender: FDA-Public Use
  Company Number: GB-RARE DISEASE THERAPEUTICS, INC.-1044508

PATIENT
  Age: 2 Month
  Weight: .4 kg

DRUGS (2)
  1. ALLOPURINOL. [Suspect]
     Active Substance: ALLOPURINOL
     Route: 065
  2. PURIXAN [Suspect]
     Active Substance: MERCAPTOPURINE
     Route: 065

REACTIONS (5)
  - Neonatal respiratory failure [Fatal]
  - Caesarean section [Unknown]
  - Low birth weight baby [Unknown]
  - Foetal exposure during pregnancy [Unknown]
  - Cerebral haemorrhage [Fatal]
